FAERS Safety Report 5310963-8 (Version None)
Quarter: 2007Q2

REPORT INFORMATION
  Report Type: 
  Country: None (occurrence: None)
  Receive Date: 20070426
  Receipt Date: 20070426
  Transmission Date: 20071010
  Serious: No
  Sender: FDA-Public Use
  Company Number: None

PATIENT
  Sex: Male
  Weight: 92.5338 kg

DRUGS (1)
  1. RITUXAN [Suspect]
     Indication: MANTLE CELL LYMPHOMA
     Dosage: 700MG 1ST INFUSION IV
     Route: 042
     Dates: start: 20061001

REACTIONS (7)
  - CHILLS [None]
  - ERYTHEMA [None]
  - LIP SWELLING [None]
  - OEDEMA MOUTH [None]
  - OXYGEN SATURATION DECREASED [None]
  - PHARYNGEAL OEDEMA [None]
  - RETCHING [None]
